FAERS Safety Report 10254537 (Version 1)
Quarter: 2014Q2

REPORT INFORMATION
  Report Type: Spontaneous
  Country: US (occurrence: None)
  Receive Date: 20140620
  Receipt Date: 20140620
  Transmission Date: 20141212
  Serious: Yes (Hospitalization)
  Sender: FDA-Public Use
  Company Number: None

PATIENT
  Age: 22 Year
  Sex: Female
  Weight: 42.41 kg

DRUGS (6)
  1. EXJADE [Suspect]
     Indication: PANCYTOPENIA
     Route: 048
     Dates: start: 20131206
  2. LANTUS [Concomitant]
  3. SYNTHROID [Concomitant]
  4. HUMALOG [Concomitant]
  5. CALCIUM [Concomitant]
  6. VIT. D [Concomitant]

REACTIONS (2)
  - Drug dose omission [None]
  - Investigation [None]
